FAERS Safety Report 10050635 (Version 1)
Quarter: 2014Q2

REPORT INFORMATION
  Report Type: Spontaneous
  Country: US (occurrence: US)
  Receive Date: 20140401
  Receipt Date: 20140401
  Transmission Date: 20141212
  Serious: No
  Sender: FDA-Public Use
  Company Number: US-ASTRAZENECA-2013SE64762

PATIENT
  Age: 67 Year
  Sex: Female
  Weight: 70.3 kg

DRUGS (13)
  1. NEXIUM [Suspect]
     Indication: ABDOMINAL DISCOMFORT
     Route: 048
     Dates: start: 201008, end: 201304
  2. OMEPRAZOLE [Suspect]
     Indication: ABDOMINAL DISCOMFORT
     Route: 048
  3. OMEPRAZOLE [Suspect]
     Indication: ABDOMINAL DISCOMFORT
     Route: 048
     Dates: start: 201304
  4. METAMUCIL [Concomitant]
     Dosage: 3 TABLETS BID
     Route: 048
  5. PRESERVISION [Concomitant]
     Indication: SUPPLEMENTATION THERAPY
     Dosage: DAILY
     Route: 048
  6. ALENDRONATE [Concomitant]
     Indication: PARATHYROID DISORDER
     Route: 048
     Dates: start: 2011
  7. CENTRUM SILVER FOR WOMEN [Concomitant]
     Indication: SUPPLEMENTATION THERAPY
     Dosage: 1 TABLET DAILY
     Route: 048
     Dates: start: 2011
  8. VITAMIN D3 [Concomitant]
     Indication: SUPPLEMENTATION THERAPY
     Route: 048
     Dates: start: 2010
  9. ASPIRIN [Concomitant]
     Indication: CARDIAC DISORDER
     Route: 048
     Dates: start: 2011
  10. METFORMIN [Concomitant]
     Indication: DIABETES MELLITUS
     Route: 048
     Dates: start: 2010
  11. COLACE [Concomitant]
     Indication: LAXATIVE SUPPORTIVE CARE
     Dosage: 1 TABLET QOD
     Route: 048
     Dates: start: 201304
  12. FUROSEMIDE [Concomitant]
     Indication: CARDIAC DISORDER
     Route: 048
     Dates: start: 2012
  13. ATORVASTATIN [Concomitant]
     Indication: BLOOD CHOLESTEROL
     Route: 048
     Dates: start: 2011

REACTIONS (12)
  - Abdominal distension [Not Recovered/Not Resolved]
  - Aphagia [Not Recovered/Not Resolved]
  - Barrett^s oesophagus [Unknown]
  - Blood calcium increased [Unknown]
  - Blood cholesterol abnormal [Not Recovered/Not Resolved]
  - Body height decreased [Unknown]
  - Diabetes mellitus [Not Recovered/Not Resolved]
  - Macular degeneration [Not Recovered/Not Resolved]
  - Pain [Not Recovered/Not Resolved]
  - Pericardial effusion [Unknown]
  - Constipation [Unknown]
  - Flatulence [Not Recovered/Not Resolved]
